FAERS Safety Report 9737070 (Version 2)
Quarter: 2014Q1

REPORT INFORMATION
  Report Type: Spontaneous
  Country: GB (occurrence: GB)
  Receive Date: 20131206
  Receipt Date: 20140120
  Transmission Date: 20141002
  Serious: Yes (Death, Other)
  Sender: FDA-Public Use
  Company Number: GB-ELI_LILLY_AND_COMPANY-GB201312002039

PATIENT
  Sex: 0

DRUGS (4)
  1. GEMCITABINE HYDROCHLORIDE [Suspect]
     Indication: MYCOSIS FUNGOIDES
     Dosage: 1000 MG/M2, OTHER
     Route: 042
  2. BEXAROTENE [Interacting]
     Indication: MYCOSIS FUNGOIDES
     Dosage: 150 MG/M2, QD
     Route: 048
  3. FENOFIBRATE [Concomitant]
     Indication: LIPIDS
  4. THYROXINE [Concomitant]
     Indication: LIPIDS

REACTIONS (3)
  - Sepsis [Fatal]
  - Mycosis fungoides [Fatal]
  - Drug interaction [Unknown]
